FAERS Safety Report 7897171-1 (Version None)
Quarter: 2011Q4

REPORT INFORMATION
  Report Type: 
  Country: None (occurrence: None)
  Receive Date: 20111107
  Receipt Date: 20111024
  Transmission Date: 20120403
  Serious: Yes (Hospitalization, Other)
  Sender: FDA-Public Use
  Company Number: US-ELI_LILLY_AND_COMPANY-US201110007027

PATIENT
  Age: 65 Year
  Sex: Female

DRUGS (2)
  1. DIURETICS [Concomitant]
  2. CYMBALTA [Suspect]
     Indication: DEPRESSION
     Dosage: 60 MG, UNKNOWN

REACTIONS (3)
  - RENAL FAILURE [None]
  - HOSPITALISATION [None]
  - INTENTIONAL DRUG MISUSE [None]
